FAERS Safety Report 10175876 (Version 1)
Quarter: 2014Q2

REPORT INFORMATION
  Report Type: Spontaneous
  Country: US (occurrence: None)
  Receive Date: 20140425
  Receipt Date: 20140425
  Transmission Date: 20141212
  Serious: No
  Sender: FDA-Public Use
  Company Number: AP356-00534-SPO-US

PATIENT
  Age: 66 Year
  Sex: Female
  Weight: 77.27 kg

DRUGS (4)
  1. BELVIQ (LORCASERIN HYDROCHLORIDE) [Suspect]
     Indication: WEIGHT DECREASED
     Dosage: 2 IN 1 D
     Route: 048
     Dates: start: 20140314
  2. SYNTHROID (LEVOTHYROXINE SODIUM) [Concomitant]
  3. DIAZEPAM (DIAZEPAM) [Concomitant]
  4. PROZAC (FLUOXETINE) [Concomitant]

REACTIONS (1)
  - Nausea [None]
